FAERS Safety Report 6217631-9 (Version None)
Quarter: 2009Q2

REPORT INFORMATION
  Report Type: 
  Country: None (occurrence: None)
  Receive Date: 20090608
  Receipt Date: 20090430
  Transmission Date: 20091009
  Serious: No
  Sender: FDA-Public Use
  Company Number: A0781542A

PATIENT
  Age: 44 Year
  Sex: Female

DRUGS (5)
  1. WELLBUTRIN XL [Suspect]
     Indication: DEPRESSION
     Dosage: 300MG PER DAY
     Route: 048
     Dates: start: 20081101
  2. PROZAC [Concomitant]
  3. KLONOPIN [Concomitant]
  4. XANAX [Concomitant]
  5. HYDROCHLOROTHIAZIDE [Concomitant]

REACTIONS (2)
  - MEDICATION RESIDUE [None]
  - THERAPEUTIC RESPONSE DECREASED [None]
